FAERS Safety Report 17416712 (Version 2)
Quarter: 2020Q1

REPORT INFORMATION
  Report Type: Spontaneous
  Country: US (occurrence: US)
  Receive Date: 20200214
  Receipt Date: 20200218
  Transmission Date: 20200409
  Serious: No
  Sender: FDA-Public Use
  Company Number: US-SA-2020SA038301

PATIENT
  Age: 19 Year
  Sex: Male

DRUGS (1)
  1. ADMELOG [Suspect]
     Active Substance: INSULIN LISPRO
     Indication: TYPE 2 DIABETES MELLITUS
     Dosage: 6 IU AT BRAKFAST,10 IU AT LUNCHTIME,10-12 IU AT DINNER
     Route: 065

REACTIONS (2)
  - Device leakage [Unknown]
  - Blood glucose increased [Unknown]
